FAERS Safety Report 11195189 (Version 1)
Quarter: 2015Q2

REPORT INFORMATION
  Report Type: Spontaneous
  Country: GB (occurrence: None)
  Receive Date: 20150615
  Receipt Date: 20150615
  Transmission Date: 20150821
  Serious: Yes (Other)
  Sender: FDA-Public Use
  Company Number: FK201502740

PATIENT
  Age: 71 Year
  Sex: Male

DRUGS (9)
  1. CISPLATIN (MANUFACTURER UNKNOWN) (CISPLATIN) (CISPLATIN) [Suspect]
     Active Substance: CISPLATIN
     Indication: PERIPHERAL T-CELL LYMPHOMA UNSPECIFIED
     Dosage: 100 MG/M2, 1 IN 15 D, UNKNOWN
  2. PREDNISOLONE. [Concomitant]
     Active Substance: PREDNISOLONE
  3. CISPLATIN (MANUFACTURER UNKNOWN) (CISPLATIN) (CISPLATIN) [Suspect]
     Active Substance: CISPLATIN
     Indication: PULMONARY MASS
     Dosage: 100 MG/M2, 1 IN 15 D, UNKNOWN
  4. VINCRISTINE [Concomitant]
     Active Substance: VINCRISTINE
  5. CYCLOPHOSPHAMIDE. [Concomitant]
     Active Substance: CYCLOPHOSPHAMIDE
  6. CISPLATIN (MANUFACTURER UNKNOWN) (CISPLATIN) (CISPLATIN) [Suspect]
     Active Substance: CISPLATIN
     Indication: BONE NEOPLASM
     Dosage: 100 MG/M2, 1 IN 15 D, UNKNOWN
  7. DOXORUBICIN [Concomitant]
     Active Substance: DOXORUBICIN
  8. CISPLATIN (MANUFACTURER UNKNOWN) (CISPLATIN) (CISPLATIN) [Suspect]
     Active Substance: CISPLATIN
     Indication: HEPATIC NEOPLASM
     Dosage: 100 MG/M2, 1 IN 15 D, UNKNOWN
  9. GEMCITABINE [Concomitant]
     Active Substance: GEMCITABINE\GEMCITABINE HYDROCHLORIDE

REACTIONS (1)
  - Recall phenomenon [None]
